FAERS Safety Report 4569481-7 (Version None)
Quarter: 2005Q1

REPORT INFORMATION
  Report Type: 
  Country: None (occurrence: None)
  Receive Date: 20050203
  Receipt Date: 20050125
  Transmission Date: 20050727
  Serious: Yes (Hospitalization)
  Sender: FDA-Public Use
  Company Number: US-JNJFOC-20050106657

PATIENT
  Sex: Female
  Weight: 68.04 kg

DRUGS (8)
  1. DURAGESIC [Suspect]
     Route: 062
  2. DURAGESIC [Suspect]
     Route: 062
  3. DURAGESIC [Suspect]
     Route: 062
  4. DURAGESIC [Suspect]
     Route: 062
  5. DURAGESIC [Suspect]
     Route: 062
  6. DURAGESIC [Suspect]
     Route: 062
  7. LORTAB [Concomitant]
     Route: 049
  8. LORTAB [Concomitant]
     Dosage: 75/500 AS NEEDED
     Route: 049

REACTIONS (2)
  - MUSCLE SPASMS [None]
  - PAIN [None]
